FAERS Safety Report 16024228 (Version 1)
Quarter: 2019Q1

REPORT INFORMATION
  Report Type: Spontaneous
  Country: FR (occurrence: FR)
  Receive Date: 20190301
  Receipt Date: 20190301
  Transmission Date: 20190418
  Serious: Yes (Hospitalization)
  Sender: FDA-Public Use
  Company Number: FR-NAPPMUNDI-GBR-2019-0064440

PATIENT
  Age: 79 Year
  Sex: Female
  Weight: 70 kg

DRUGS (11)
  1. DOLIPRANE [Concomitant]
     Active Substance: ACETAMINOPHEN
     Dosage: UNK
  2. OXYNORMORO [Suspect]
     Active Substance: OXYCODONE HYDROCHLORIDE
     Indication: PAIN
     Dosage: 4 DF, DAILY (STRENGHT 5MG)
     Route: 048
     Dates: end: 20190123
  3. INVANZ [Suspect]
     Active Substance: ERTAPENEM SODIUM
     Indication: SEPSIS
     Dosage: 2 DF, DAILY
     Route: 042
     Dates: start: 20190118, end: 20190126
  4. DAPTOMYCIN. [Suspect]
     Active Substance: DAPTOMYCIN
     Indication: SEPSIS
     Dosage: 1 DF, DAILY
     Route: 042
     Dates: start: 20190115, end: 20190127
  5. SPIRONOLACTONE. [Concomitant]
     Active Substance: SPIRONOLACTONE
  6. LOVENOX [Concomitant]
     Active Substance: ENOXAPARIN SODIUM
  7. OXYCODONE HYDROCHLORIDE. [Suspect]
     Active Substance: OXYCODONE HYDROCHLORIDE
     Indication: PAIN
     Dosage: 2 DF, DAILY
     Route: 048
     Dates: end: 20190123
  8. DIFFU K [Suspect]
     Active Substance: POTASSIUM CHLORIDE
     Indication: MINERAL SUPPLEMENTATION
     Dosage: 6 DF, DAILY
     Route: 048
     Dates: start: 20190114, end: 20190123
  9. CANCIDAS [Suspect]
     Active Substance: CASPOFUNGIN ACETATE
     Indication: SEPSIS
     Dosage: 1 DF, DAILY
     Route: 042
     Dates: start: 20190118, end: 20190124
  10. IMOVANE [Suspect]
     Active Substance: ZOPICLONE
     Indication: SLEEP DISORDER
     Dosage: 1 DF, DAILY
     Route: 048
     Dates: end: 20190123
  11. HYDROCHLOROTHIAZIDE. [Concomitant]
     Active Substance: HYDROCHLOROTHIAZIDE

REACTIONS (1)
  - Encephalopathy [Recovered/Resolved]

NARRATIVE: CASE EVENT DATE: 20190121
